FAERS Safety Report 21438922 (Version 1)
Quarter: 2022Q4

REPORT INFORMATION
  Report Type: Spontaneous
  Country: US (occurrence: None)
  Receive Date: 20221007
  Receipt Date: 20221007
  Transmission Date: 20230113
  Serious: Yes (Hospitalization)
  Sender: FDA-Public Use
  Company Number: None

PATIENT
  Sex: Male

DRUGS (8)
  1. ZENPEP [Suspect]
     Active Substance: PANCRELIPASE AMYLASE\PANCRELIPASE LIPASE\PANCRELIPASE PROTEASE
     Indication: Cystic fibrosis
     Dates: start: 20201230
  2. AQUADEKS [Concomitant]
  3. IBUPROFEN [Concomitant]
     Active Substance: IBUPROFEN
  4. LANSOPRAZOLE [Concomitant]
     Active Substance: LANSOPRAZOLE
  5. MIRALAX [Concomitant]
     Active Substance: POLYETHYLENE GLYCOL 3350
  6. ORKAMBI [Concomitant]
     Active Substance: IVACAFTOR\LUMACAFTOR
  7. PULMOZYME [Concomitant]
  8. XOPENEX [Concomitant]
     Active Substance: LEVALBUTEROL HYDROCHLORIDE

REACTIONS (7)
  - Infection [None]
  - Nasal inflammation [None]
  - Nasal congestion [None]
  - Cough [None]
  - Increased viscosity of upper respiratory secretion [None]
  - Gastrointestinal disorder [None]
  - Constipation [None]
